FAERS Safety Report 5104936-8 (Version None)
Quarter: 2006Q3

REPORT INFORMATION
  Report Type: 
  Country: None (occurrence: None)
  Receive Date: 20060911
  Receipt Date: 20060829
  Transmission Date: 20061208
  Serious: Yes (Hospitalization)
  Sender: FDA-Public Use
  Company Number: ABPAS-06-0419

PATIENT
  Age: 47 Year
  Sex: Female
  Weight: 50.8029 kg

DRUGS (6)
  1. ABRAXANE [Suspect]
     Indication: BREAST CANCER METASTATIC
     Dosage: 155MG X 1 DOSE (SCHEDULED EVERY 3 WEEKS), INTRAVENOUS DRIP
     Route: 041
     Dates: start: 20060713, end: 20060713
  2. CARBOPLATIN [Suspect]
     Indication: BREAST CANCER METASTATIC
     Dosage: 1 DOSE
     Dates: start: 20060713
  3. AVASTIN [Suspect]
     Indication: BREAST CANCER METASTATIC
     Dosage: 1 DOSE
     Dates: start: 20060713
  4. NEXIUM [Concomitant]
  5. ADVIL [Concomitant]
  6. OXYCODONE HCL [Concomitant]

REACTIONS (18)
  - ABSCESS LIMB [None]
  - ANAEMIA [None]
  - BLOOD CALCIUM DECREASED [None]
  - BLOOD CHLORIDE INCREASED [None]
  - BLOOD GLUCOSE INCREASED [None]
  - BLOOD POTASSIUM INCREASED [None]
  - BLOOD UREA INCREASED [None]
  - DEHYDRATION [None]
  - ELECTROLYTE IMBALANCE [None]
  - HEPATIC ENCEPHALOPATHY [None]
  - LUNG NEOPLASM [None]
  - MALNUTRITION [None]
  - METASTASES TO LIVER [None]
  - METASTASES TO LUNG [None]
  - NEUTROPENIA [None]
  - PLEURAL EFFUSION [None]
  - STOMATITIS [None]
  - THROMBOCYTOPENIA [None]
